FAERS Safety Report 9519916 (Version 1)
Quarter: 2013Q3

REPORT INFORMATION
  Report Type: Spontaneous
  Country: GB (occurrence: GB)
  Receive Date: 20130912
  Receipt Date: 20130912
  Transmission Date: 20140515
  Serious: Yes (Other)
  Sender: FDA-Public Use
  Company Number: GB-JHP PHARMACEUTICALS, LLC-JHP201300539

PATIENT
  Sex: Male

DRUGS (6)
  1. DANTRIUM [Suspect]
  2. OXYBUTYNIN [Concomitant]
  3. TIZANIDINE [Concomitant]
  4. CARBAMAZEPINE [Concomitant]
  5. CLONIDINE [Concomitant]
  6. CARBOCYSTEINE [Concomitant]

REACTIONS (4)
  - Road traffic accident [Recovered/Resolved]
  - Infertility male [Unknown]
  - Erectile dysfunction [Unknown]
  - Libido decreased [Unknown]
